FAERS Safety Report 6669232-6 (Version None)
Quarter: 2010Q2

REPORT INFORMATION
  Report Type: 
  Country: None (occurrence: None)
  Receive Date: 20100406
  Receipt Date: 20100328
  Transmission Date: 20101027
  Serious: Yes (Other)
  Sender: FDA-Public Use
  Company Number: IL-ABBOTT-10P-082-0634948-00

PATIENT
  Age: 20 Year
  Sex: Male
  Weight: 50 kg

DRUGS (3)
  1. HUMIRA [Suspect]
     Indication: CROHN'S DISEASE
     Route: 058
     Dates: start: 20100328
  2. STEROIDS [Concomitant]
     Indication: DRUG USE FOR UNKNOWN INDICATION
     Dates: end: 20100301
  3. STEROIDS [Concomitant]
     Dates: start: 20100301

REACTIONS (3)
  - HAEMOGLOBIN DECREASED [None]
  - LOSS OF CONSCIOUSNESS [None]
  - SYNCOPE [None]
